FAERS Safety Report 7535497-1 (Version None)
Quarter: 2011Q2

REPORT INFORMATION
  Report Type: 
  Country: None (occurrence: None)
  Receive Date: 20110601
  Receipt Date: 20110524
  Transmission Date: 20111010
  Serious: Yes (Other)
  Sender: FDA-Public Use
  Company Number: 2011SP024270

PATIENT
  Age: 83 Year
  Sex: Female

DRUGS (2)
  1. HEPARIN SODIUM [Suspect]
     Indication: CARDIOPULMONARY BYPASS
  2. HEPARIN SODIUM [Suspect]
     Indication: ANTICOAGULANT THERAPY

REACTIONS (6)
  - ANTI-PLATELET ANTIBODY POSITIVE [None]
  - THROMBOSIS [None]
  - PARAESTHESIA [None]
  - HEPARIN-INDUCED THROMBOCYTOPENIA [None]
  - INTRACARDIAC THROMBUS [None]
  - AORTIC THROMBOSIS [None]
